FAERS Safety Report 4393477-1 (Version None)
Quarter: 2004Q3

REPORT INFORMATION
  Report Type: 
  Country: None (occurrence: None)
  Receive Date: 20040701
  Receipt Date: 20040618
  Transmission Date: 20050211
  Serious: Yes (Life-Threatening, Hospitalization)
  Sender: FDA-Public Use
  Company Number: 2004041704

PATIENT
  Sex: Female

DRUGS (1)
  1. NORVASC [Suspect]
     Indication: ILL-DEFINED DISORDER
     Dosage: 5 MG, ORAL
     Route: 048

REACTIONS (5)
  - DEPRESSION [None]
  - HAEMATEMESIS [None]
  - INTENTIONAL OVERDOSE [None]
  - SUICIDE ATTEMPT [None]
  - SYNCOPE [None]
